FAERS Safety Report 9074410 (Version 1)
Quarter: 2013Q1

REPORT INFORMATION
  Report Type: Report from Study
  Country: US (occurrence: US)
  Receive Date: 20130128
  Receipt Date: 20130128
  Transmission Date: 20140127
  Serious: No
  Sender: FDA-Public Use
  Company Number: US-ABBOTT-12P-163-0904115-00

PATIENT
  Age: 75 Year
  Sex: Female

DRUGS (8)
  1. HUMIRA 40 MG/ 0.8 ML PRE-FILLED SYRINGE [Suspect]
     Indication: RHEUMATOID ARTHRITIS
     Dates: start: 20111231
  2. LOVASTATIN [Concomitant]
     Indication: BLOOD CHOLESTEROL
  3. RANTIDINE [Concomitant]
     Indication: HIATUS HERNIA
  4. EVOXAC [Concomitant]
     Indication: SJOGREN^S SYNDROME
     Dosage: TAKE 2 TO 3 DAILY
  5. DIAZEPAM [Concomitant]
     Indication: INSOMNIA
     Dosage: TAKE 1 AT NIGHT
  6. HYDROCODONE [Concomitant]
     Indication: BACK PAIN
     Dosage: 5/500 MG TAKE 1 TO 2 EVERYDAY
  7. VITAMIN D [Concomitant]
     Indication: HYPOVITAMINOSIS
  8. VITAMIN B12 [Concomitant]
     Indication: HYPOVITAMINOSIS

REACTIONS (3)
  - Hypoaesthesia [Not Recovered/Not Resolved]
  - Swelling [Not Recovered/Not Resolved]
  - Hypoaesthesia [Not Recovered/Not Resolved]
